FAERS Safety Report 5402262-0 (Version None)
Quarter: 2007Q3

REPORT INFORMATION
  Report Type: 
  Country: None (occurrence: None)
  Receive Date: 20070801
  Receipt Date: 20070717
  Transmission Date: 20080115
  Serious: Yes (Hospitalization)
  Sender: FDA-Public Use
  Company Number: US-JNJFOC-20060903679

PATIENT
  Sex: Female
  Weight: 55.79 kg

DRUGS (2)
  1. ORTHO EVRA [Suspect]
     Indication: DRUG USE FOR UNKNOWN INDICATION
  2. MAXALT [Concomitant]
     Indication: MIGRAINE

REACTIONS (1)
  - MYOCARDIAL INFARCTION [None]
